FAERS Safety Report 7720412-8 (Version None)
Quarter: 2011Q3

REPORT INFORMATION
  Report Type: 
  Country: None (occurrence: None)
  Receive Date: 20110831
  Receipt Date: 20110819
  Transmission Date: 20111222
  Serious: Yes (Hospitalization)
  Sender: FDA-Public Use
  Company Number: FR-KINGPHARMUSA00001-K201100976

PATIENT
  Age: 72 Year
  Sex: Female

DRUGS (16)
  1. LOVENOX [Concomitant]
     Indication: THROMBOSIS PROPHYLAXIS
     Dosage: 0.4 ML, QD
     Route: 058
  2. LANTUS [Concomitant]
     Indication: DIABETES MELLITUS
     Dosage: 32 IU, QD
     Route: 058
  3. PREDNISONE [Concomitant]
     Indication: RHEUMATOID ARTHRITIS
     Dosage: 15 MG, QD
     Route: 048
  4. NOVORAPID [Concomitant]
     Indication: DIABETES MELLITUS
     Dosage: 38 IU, QD
     Route: 058
  5. ALTACE [Suspect]
     Indication: HYPERTENSION
     Dosage: 1.25 MG, QD
     Route: 048
  6. LASIX [Suspect]
     Indication: HYPERTENSION
     Dosage: 40 MG, BID
     Route: 048
  7. DUOPLAVIN [Suspect]
     Indication: ANGINA PECTORIS
     Dosage: 75 MG, QD
     Route: 048
     Dates: start: 20110420
  8. ZOLEDRONIC ACID [Suspect]
     Indication: OSTEOPOROSIS
     Dosage: 5 MG, SINGLE
     Route: 042
     Dates: start: 20110531, end: 20110531
  9. ROSUVASTATIN CALCIUM [Concomitant]
     Indication: DYSLIPIDAEMIA
     Dosage: 20 MG, QD
     Route: 048
  10. FORLAX [Concomitant]
     Indication: CONSTIPATION
     Dosage: 4 G, QD
     Route: 048
  11. LEVOTHYROXINE SODIUM [Concomitant]
     Indication: HYPOTHYROIDISM
     Dosage: 75 MCG, QD
     Route: 048
  12. OMNIPAQUE 140 [Suspect]
     Indication: ARTERIOGRAM CORONARY
     Dosage: 300 MG, SINGLE
     Route: 042
     Dates: start: 20110605, end: 20110605
  13. MORPHINE SULFATE [Concomitant]
     Indication: PAIN
     Dosage: 40 MG, QD
     Route: 048
  14. LEXOMIL [Concomitant]
     Dosage: 0.5 TABLET, QD
     Route: 048
  15. RABEPRAZOLE SODIUM [Concomitant]
     Indication: PROPHYLAXIS AGAINST GASTROINTESTINAL ULCER
     Dosage: 20 MG, QD
     Route: 048
  16. MORPHINE SULFATE [Concomitant]
     Indication: PAIN
     Dosage: 40 MG, QD
     Route: 048

REACTIONS (13)
  - PULMONARY OEDEMA [None]
  - ANGINA UNSTABLE [None]
  - BLOOD UREA INCREASED [None]
  - RENAL FAILURE ACUTE [None]
  - HAEMATURIA [None]
  - CREATININE RENAL CLEARANCE DECREASED [None]
  - BLOOD CREATININE INCREASED [None]
  - ANTINUCLEAR ANTIBODY POSITIVE [None]
  - ACIDOSIS [None]
  - NEPHROPATHY TOXIC [None]
  - RHEUMATOID ARTHRITIS [None]
  - PROTEINURIA [None]
  - RENAL TUBULAR NECROSIS [None]
